FAERS Safety Report 8532719-5 (Version None)
Quarter: 2012Q3

REPORT INFORMATION
  Report Type: 
  Country: None (occurrence: None)
  Receive Date: 20120724
  Receipt Date: 20120718
  Transmission Date: 20120928
  Serious: Yes (Other)
  Sender: FDA-Public Use
  Company Number: PHHY2012BR062158

PATIENT
  Age: 71 Year
  Sex: Male

DRUGS (1)
  1. DICLOFENAC SODIUM [Suspect]
     Indication: ARTHRITIS
     Dosage: 50 MG,

REACTIONS (5)
  - MYALGIA [None]
  - ARTHRALGIA [None]
  - PAIN [None]
  - BONE FRAGMENTATION [None]
  - PAIN IN EXTREMITY [None]
